FAERS Safety Report 16381457 (Version 1)
Quarter: 2019Q2

REPORT INFORMATION
  Report Type: Spontaneous
  Country: GR (occurrence: GR)
  Receive Date: 20190603
  Receipt Date: 20190603
  Transmission Date: 20190711
  Serious: Yes (Other)
  Sender: FDA-Public Use
  Company Number: GR-TEVA-2019-GR-1056784

PATIENT
  Age: 18 Year
  Sex: Female

DRUGS (1)
  1. METHOTREXATE. [Suspect]
     Active Substance: METHOTREXATE
     Indication: ACUTE LYMPHOCYTIC LEUKAEMIA
     Dosage: 10 GRAM DAILY; DOSE OF 5G/M2 (10G IN TOTAL ACCORDING TO IDEAL BODY SURFACE) ACCORDING TO THE BFM PRO
     Route: 065

REACTIONS (10)
  - Vomiting [Unknown]
  - Ileus paralytic [Unknown]
  - Anuria [Recovered/Resolved]
  - Mucosal erosion [Unknown]
  - Leukopenia [Unknown]
  - Thrombocytopenia [Unknown]
  - Acute kidney injury [Recovered/Resolved]
  - Rash [Unknown]
  - Rash vesicular [Unknown]
  - Diarrhoea [Unknown]
